FAERS Safety Report 9868759 (Version 1)
Quarter: 2014Q1

REPORT INFORMATION
  Report Type: Spontaneous
  Country: BE (occurrence: BE)
  Receive Date: 20140204
  Receipt Date: 20140204
  Transmission Date: 20141002
  Serious: Yes (Other)
  Sender: FDA-Public Use
  Company Number: BE-ALLERGAN-1401536US

PATIENT
  Age: 50 Year
  Sex: Female
  Weight: 61 kg

DRUGS (12)
  1. BOTOX [Suspect]
     Indication: HYPERTONIC BLADDER
     Dosage: 300 UNITS, SINGLE
     Route: 043
  2. BOTOX [Suspect]
     Dosage: 300 UNITS, SINGLE
     Route: 043
  3. BOTOX [Suspect]
     Dosage: 300 UNITS, SINGLE
     Route: 043
  4. BOTOX [Suspect]
     Dosage: 300 UNITS, SINGLE
     Route: 043
  5. BOTOX [Suspect]
     Dosage: 300 UNITS, SINGLE
     Route: 043
  6. BOTOX [Suspect]
     Dosage: 300 UNITS, SINGLE
     Route: 043
  7. BOTOX [Suspect]
     Dosage: 300 UNITS, SINGLE
     Route: 043
  8. BOTOX [Suspect]
     Dosage: 300 UNITS, SINGLE
     Route: 043
  9. BOTOX [Suspect]
     Dosage: 300 UNITS, SINGLE
     Route: 043
  10. BOTOX [Suspect]
     Dosage: 300 UNITS, SINGLE
     Route: 043
  11. BOTOX [Suspect]
     Dosage: 300 UNITS, SINGLE
     Route: 043
  12. BOTOX [Suspect]
     Dosage: 300 UNITS, SINGLE
     Route: 043

REACTIONS (2)
  - Hypertension [Unknown]
  - Off label use [Unknown]
